FAERS Safety Report 14094446 (Version 3)
Quarter: 2018Q3

REPORT INFORMATION
  Report Type: Spontaneous
  Country: US (occurrence: US)
  Receive Date: 20171016
  Receipt Date: 20180808
  Transmission Date: 20181010
  Serious: Yes (Other)
  Sender: FDA-Public Use
  Company Number: US-BAYER-2017-198531

PATIENT
  Age: 33 Year
  Sex: Female
  Weight: 59.42 kg

DRUGS (1)
  1. MIRENA [Suspect]
     Active Substance: LEVONORGESTREL
     Indication: CONTRACEPTION
     Dosage: 20 MCG/24HR, CONT
     Route: 015
     Dates: start: 20170601, end: 201706

REACTIONS (2)
  - Embedded device [Recovered/Resolved]
  - Device issue [None]

NARRATIVE: CASE EVENT DATE: 2017
